FAERS Safety Report 12784666 (Version 3)
Quarter: 2017Q1

REPORT INFORMATION
  Report Type: Spontaneous
  Country: US (occurrence: US)
  Receive Date: 20160927
  Receipt Date: 20170306
  Transmission Date: 20170428
  Serious: Yes (Hospitalization)
  Sender: FDA-Public Use
  Company Number: US-JNJFOC-20160922740

PATIENT
  Age: 56 Year
  Sex: Female
  Weight: 79.38 kg

DRUGS (8)
  1. COUMADIN [Suspect]
     Active Substance: WARFARIN SODIUM
     Indication: VENA CAVA FILTER INSERTION
     Dosage: THE PATIENT WAS TREATED WITH VARYING DOSE OF 5 TO 10 MG.
     Route: 065
     Dates: start: 201510
  2. XARELTO [Suspect]
     Active Substance: RIVAROXABAN
     Indication: THROMBOSIS PROPHYLAXIS
     Dosage: THE PATIENT WAS TREATED WITH 15 MG/20 MG.
     Route: 048
     Dates: start: 20150807, end: 20150930
  3. METFORMIN [Concomitant]
     Active Substance: METFORMIN HYDROCHLORIDE
     Route: 065
     Dates: start: 2009
  4. XARELTO [Suspect]
     Active Substance: RIVAROXABAN
     Indication: THROMBOSIS PROPHYLAXIS
     Dosage: THE PATIENT WAS TREATED WITH 15 MG/20 MG.
     Route: 048
     Dates: start: 20150807, end: 20150930
  5. COUMADIN [Suspect]
     Active Substance: WARFARIN SODIUM
     Indication: MITRAL VALVE DISEASE
     Dosage: THE PATIENT WAS TREATED WITH VARYING DOSE OF 5 TO 10 MG.
     Route: 065
     Dates: start: 201510
  6. LOVENOX [Suspect]
     Active Substance: ENOXAPARIN SODIUM
     Indication: SURGERY
     Route: 065
     Dates: start: 2015, end: 2016
  7. SYNTHROID [Concomitant]
     Active Substance: LEVOTHYROXINE SODIUM
     Route: 065
     Dates: start: 1999
  8. COUMADIN [Suspect]
     Active Substance: WARFARIN SODIUM
     Indication: SEPTIC EMBOLUS
     Dosage: THE PATIENT WAS TREATED WITH VARYING DOSE OF 5 TO 10 MG.
     Route: 065
     Dates: start: 201510

REACTIONS (4)
  - Fall [Unknown]
  - Endocarditis bacterial [Unknown]
  - Haemorrhagic stroke [Unknown]
  - Septic embolus [Unknown]

NARRATIVE: CASE EVENT DATE: 2015
